FAERS Safety Report 8414132-4 (Version None)
Quarter: 2012Q2

REPORT INFORMATION
  Report Type: 
  Country: None (occurrence: None)
  Receive Date: 20120605
  Receipt Date: 20120528
  Transmission Date: 20120825
  Serious: Yes (Hospitalization, Other)
  Sender: FDA-Public Use
  Company Number: JP-VERTEX PHARMACEUTICALS INC.-AE-2012-002670

PATIENT
  Age: 61 Year
  Sex: Female

DRUGS (9)
  1. TELAVIC (TELAPREVIR) [Suspect]
     Indication: HEPATITIS C
     Route: 048
     Dates: start: 20120209, end: 20120321
  2. TELAVIC (TELAPREVIR) [Suspect]
     Route: 048
     Dates: start: 20120322, end: 20120329
  3. PEGINTERFERON ALFA-2A [Concomitant]
     Indication: HEPATITIS C
     Route: 058
     Dates: start: 20120209
  4. RIBAVIRIN [Concomitant]
     Route: 048
     Dates: start: 20120308, end: 20120401
  5. ENALAPRIL MALEATE [Concomitant]
     Route: 048
     Dates: end: 20120315
  6. PEGINTERFERON ALFA-2A [Concomitant]
     Route: 058
     Dates: end: 20120329
  7. AMLODIPINE [Concomitant]
     Route: 048
     Dates: end: 20120315
  8. RIBAVIRIN [Concomitant]
     Indication: HEPATITIS C
     Route: 048
     Dates: start: 20120209, end: 20120209
  9. RIBAVIRIN [Concomitant]
     Route: 048
     Dates: start: 20120210, end: 20120307

REACTIONS (7)
  - RASH [None]
  - ANAEMIA [None]
  - BLOOD CREATININE INCREASED [None]
  - BLOOD URIC ACID INCREASED [None]
  - MALAISE [None]
  - WHITE BLOOD CELL COUNT DECREASED [None]
  - HAEMOGLOBIN DECREASED [None]
